FAERS Safety Report 7823031-8 (Version None)
Quarter: 2011Q4

REPORT INFORMATION
  Report Type: 
  Country: None (occurrence: None)
  Receive Date: 20111018
  Receipt Date: 20101026
  Transmission Date: 20120403
  Serious: No
  Sender: FDA-Public Use
  Company Number: US-ASTRAZENECA-2010SE56725

PATIENT
  Age: 826 Month
  Sex: Female
  Weight: 90.7 kg

DRUGS (3)
  1. LASIX [Concomitant]
     Dosage: UNKNOWN DOSE AS REQUIRED
  2. SYMBICORT [Suspect]
     Indication: CHRONIC OBSTRUCTIVE PULMONARY DISEASE
     Dosage: 160/4.5 MCG UNKNOWN FREQUENCY
     Route: 055
     Dates: start: 20100101
  3. BYSTOLIC [Concomitant]
     Indication: HYPERTENSION

REACTIONS (2)
  - DYSPNOEA [None]
  - DRUG INEFFECTIVE [None]
